FAERS Safety Report 14101538 (Version 2)
Quarter: 2017Q4

REPORT INFORMATION
  Report Type: Report from Study
  Country: None (occurrence: US)
  Receive Date: 20171018
  Receipt Date: 20171116
  Transmission Date: 20180321
  Serious: Yes (Hospitalization)
  Sender: FDA-Public Use
  Company Number: US-ABBVIE-17K-163-1988413-00

PATIENT
  Age: 28 Year
  Sex: Female
  Weight: 38.14 kg

DRUGS (2)
  1. HUMIRA [Suspect]
     Active Substance: ADALIMUMAB
     Indication: CROHN^S DISEASE
     Route: 058
     Dates: start: 20170510, end: 201707
  2. HUMIRA [Suspect]
     Active Substance: ADALIMUMAB
     Route: 058
     Dates: start: 201707, end: 20170920

REACTIONS (10)
  - Eating disorder [Not Recovered/Not Resolved]
  - Vomiting [Recovering/Resolving]
  - Intestinal stenosis [Recovered/Resolved]
  - X-ray gastrointestinal tract abnormal [Not Recovered/Not Resolved]
  - Diarrhoea [Not Recovered/Not Resolved]
  - Abdominal pain [Recovering/Resolving]
  - Dehydration [Unknown]
  - Malnutrition [Unknown]
  - Nausea [Recovering/Resolving]
  - Weight decreased [Not Recovered/Not Resolved]

NARRATIVE: CASE EVENT DATE: 2017
